FAERS Safety Report 23977386 (Version 1)
Quarter: 2024Q2

REPORT INFORMATION
  Report Type: Spontaneous
  Country: JP (occurrence: JP)
  Receive Date: 20240614
  Receipt Date: 20240614
  Transmission Date: 20240716
  Serious: Yes (Hospitalization)
  Sender: FDA-Public Use
  Company Number: JP-NShinyaku-EVA202403712ZZLILLY

PATIENT

DRUGS (5)
  1. TADALAFIL [Suspect]
     Active Substance: TADALAFIL
     Indication: Pulmonary arterial hypertension
     Dosage: UNKNOWN
     Route: 048
     Dates: start: 202307
  2. METILDIGOXIN [Concomitant]
     Active Substance: METILDIGOXIN
     Dosage: 0.025 MG, DAILY
     Route: 048
  3. ALFAROL [Concomitant]
     Active Substance: ALFACALCIDOL
     Dosage: 1 UG, DAILY
     Route: 048
  4. PREDONINE [Concomitant]
     Active Substance: PREDNISOLONE
     Dosage: 5 MG IN THE MORNING, 2 MG IN THE EVENING
     Route: 048
  5. HUMALOG [Concomitant]
     Active Substance: INSULIN LISPRO
     Dosage: UNKNOWN
     Route: 058

REACTIONS (3)
  - Pulmonary arterial hypertension [Unknown]
  - Pulmonary arterial hypertension [Recovering/Resolving]
  - Myalgia [Unknown]
